FAERS Safety Report 8884909 (Version 1)
Quarter: 2012Q4

REPORT INFORMATION
  Report Type: 
  Country: US (occurrence: US)
  Receive Date: 20121102
  Receipt Date: 20121102
  Transmission Date: 20130627
  Serious: No
  Sender: FDA-Public Use
  Company Number: US-PFIZER INC-2012273200

PATIENT
  Age: 35 Year
  Sex: Male
  Weight: 124.72 kg

DRUGS (3)
  1. ZOLOFT [Suspect]
     Indication: OBSESSIVE-COMPULSIVE DISORDER
     Dosage: 200 mg, 1x/day
     Dates: start: 201209, end: 20121025
  2. ZOLOFT [Suspect]
     Dosage: 50 mg, 1x/day
     Dates: start: 20121026
  3. CLONAZEPAM [Concomitant]
     Dosage: UNK, 1x/day

REACTIONS (2)
  - Withdrawal syndrome [Not Recovered/Not Resolved]
  - Tinnitus [Not Recovered/Not Resolved]
